FAERS Safety Report 15479308 (Version 1)
Quarter: 2018Q4

REPORT INFORMATION
  Report Type: Spontaneous
  Country: FR (occurrence: FR)
  Receive Date: 20181009
  Receipt Date: 20181009
  Transmission Date: 20190205
  Serious: No
  Sender: FDA-Public Use
  Company Number: FR-UCBSA-2018045158

PATIENT
  Age: 27 Year
  Sex: Male

DRUGS (12)
  1. KEPPRA [Suspect]
     Active Substance: LEVETIRACETAM
     Indication: OFF LABEL USE
  2. EUPANTOL [Suspect]
     Active Substance: PANTOPRAZOLE SODIUM
     Indication: PRODUCT USED FOR UNKNOWN INDICATION
     Dosage: 1 DF
     Route: 048
  3. FUNGIZONE [Concomitant]
     Active Substance: AMPHOTERICIN B
     Indication: PRODUCT USED FOR UNKNOWN INDICATION
     Dosage: UNK
     Route: 048
  4. PIRILENE [Suspect]
     Active Substance: PYRAZINAMIDE
     Indication: TUBERCULOSIS
     Dosage: 500 MG, 1 DF
     Route: 048
     Dates: start: 20180608
  5. FORLAX [Suspect]
     Active Substance: POLYETHYLENE GLYCOL 4000
     Indication: PRODUCT USED FOR UNKNOWN INDICATION
     Dosage: UNK
  6. ETHAMBUTOL [Suspect]
     Active Substance: ETHAMBUTOL HYDROCHLORIDE
     Indication: TUBERCULOSIS
     Dosage: 1 DF
     Route: 048
     Dates: start: 20180608
  7. RIFADINE [Suspect]
     Active Substance: RIFAMPIN
     Indication: TUBERCULOSIS
     Dosage: 1 DF
     Route: 048
     Dates: start: 20180608
  8. KEPPRA [Suspect]
     Active Substance: LEVETIRACETAM
     Indication: ENCEPHALITIS
     Dosage: 500MG, 2 DF
     Route: 048
     Dates: start: 20180610
  9. BECILAN [Suspect]
     Active Substance: PYRIDOXINE
     Indication: PRODUCT USED FOR UNKNOWN INDICATION
     Dosage: UNK
     Route: 048
  10. CORTANCYL [Suspect]
     Active Substance: PREDNISONE
     Indication: ANTIBIOTIC PROPHYLAXIS
     Dosage: UNK
     Route: 048
  11. RIMIFON [Suspect]
     Active Substance: ISONIAZID
     Indication: ANTIBIOTIC PROPHYLAXIS
     Dosage: 1 DF
     Route: 048
     Dates: start: 20180608
  12. LOVENOX [Concomitant]
     Active Substance: ENOXAPARIN SODIUM
     Indication: THROMBOSIS PROPHYLAXIS
     Dosage: 1 DF
     Route: 058
     Dates: start: 20180530, end: 20180703

REACTIONS (2)
  - Thrombocytopenia [Not Recovered/Not Resolved]
  - Off label use [Unknown]

NARRATIVE: CASE EVENT DATE: 20180610
